FAERS Safety Report 13148723 (Version 1)
Quarter: 2017Q1

REPORT INFORMATION
  Report Type: Spontaneous
  Country: US (occurrence: US)
  Receive Date: 20170124
  Receipt Date: 20170124
  Transmission Date: 20170428
  Serious: No
  Sender: FDA-Public Use
  Company Number: None

PATIENT
  Age: 35 Year
  Sex: Male

DRUGS (1)
  1. GABAPENTIN 800MG APOTEX CORP [Suspect]
     Active Substance: GABAPENTIN
     Indication: HIV INFECTION
     Route: 048
     Dates: start: 20160503

REACTIONS (1)
  - Amnesia [None]

NARRATIVE: CASE EVENT DATE: 20170123
